FAERS Safety Report 10393143 (Version 2)
Quarter: 2014Q3

REPORT INFORMATION
  Report Type: Spontaneous
  Country: BR (occurrence: BR)
  Receive Date: 20140819
  Receipt Date: 20140819
  Transmission Date: 20150326
  Serious: Yes (Other)
  Sender: FDA-Public Use
  Company Number: BR-SA-2014SA077503

PATIENT
  Age: 43 Year
  Sex: Male
  Weight: 68.1 kg

DRUGS (5)
  1. THYMOGLOBULINE [Suspect]
     Active Substance: LAPINE T-LYMPHOCYTE IMMUNE GLOBULIN
     Indication: PLASMA CELL MYELOMA
     Dosage: DOSE- 7 VIALS+ SALINE SOLUTION 500 ML
     Route: 042
     Dates: start: 20140608
  2. THYMOGLOBULINE [Suspect]
     Active Substance: LAPINE T-LYMPHOCYTE IMMUNE GLOBULIN
     Indication: PLASMA CELL MYELOMA
     Dosage: DOSE- 7 VIALS+ SALINE SOLUTION 500 ML
     Route: 042
  3. ACICLOVIR [Concomitant]
     Active Substance: ACYCLOVIR
  4. SOLU-MEDROL [Concomitant]
     Active Substance: METHYLPREDNISOLONE SODIUM SUCCINATE
     Indication: PREMEDICATION
     Dosage: 140MG IN SALINE SOLUTION 0.9%, INTRAVENOUSLY, IMMEDIATELY  BEFORE  USING  THYMOGLOBULINE
     Route: 042
     Dates: start: 20140609
  5. FLUCONAZOLE. [Concomitant]
     Active Substance: FLUCONAZOLE

REACTIONS (1)
  - Vein disorder [Recovered/Resolved]

NARRATIVE: CASE EVENT DATE: 20140611
